FAERS Safety Report 11174058 (Version 1)
Quarter: 2015Q2

REPORT INFORMATION
  Report Type: Spontaneous
  Country: US (occurrence: US)
  Receive Date: 20150609
  Receipt Date: 20150609
  Transmission Date: 20150821
  Serious: Yes (Other)
  Sender: FDA-Public Use
  Company Number: US-PFIZER INC-2015186968

PATIENT

DRUGS (1)
  1. ADVIL [Suspect]
     Active Substance: IBUPROFEN
     Indication: ARTHRALGIA
     Dosage: ONE PILL

REACTIONS (4)
  - Heart rate increased [Unknown]
  - Loss of consciousness [Unknown]
  - Drug ineffective [Unknown]
  - Arthropathy [Unknown]
